FAERS Safety Report 13689178 (Version 1)
Quarter: 2017Q2

REPORT INFORMATION
  Report Type: Spontaneous
  Country: US (occurrence: US)
  Receive Date: 20170624
  Receipt Date: 20170624
  Transmission Date: 20170830
  Serious: Yes (Hospitalization, Disabling)
  Sender: FDA-Public Use
  Company Number: None

PATIENT
  Age: 42 Year
  Sex: Female
  Weight: 72 kg

DRUGS (5)
  1. VITAMIN D [Concomitant]
     Active Substance: CHOLECALCIFEROL
  2. FLONASE [Concomitant]
     Active Substance: FLUTICASONE PROPIONATE
  3. PAXIL [Suspect]
     Active Substance: PAROXETINE HYDROCHLORIDE
     Indication: ANXIETY
     Dosage: ?          OTHER STRENGTH:ML;QUANTITY:.75 ML;?
     Route: 048
     Dates: start: 20151226, end: 20170624
  4. LORAZEPAM. [Suspect]
     Active Substance: LORAZEPAM
  5. DIM [Concomitant]

REACTIONS (30)
  - Seizure [None]
  - Clonus [None]
  - Aggression [None]
  - Multiple injuries [None]
  - Restless legs syndrome [None]
  - Oromandibular dystonia [None]
  - Insomnia [None]
  - Fatigue [None]
  - Tremor [None]
  - Aphasia [None]
  - Dyskinesia [None]
  - Nausea [None]
  - Muscle spasms [None]
  - Irritability [None]
  - Impaired work ability [None]
  - Confusional state [None]
  - Anxiety [None]
  - Myalgia [None]
  - Muscle spasticity [None]
  - Sensory disturbance [None]
  - Torticollis [None]
  - Paraesthesia [None]
  - Hyperhidrosis [None]
  - Impaired driving ability [None]
  - Memory impairment [None]
  - Tinnitus [None]
  - Apraxia [None]
  - Dystonia [None]
  - Disorientation [None]
  - Headache [None]

NARRATIVE: CASE EVENT DATE: 20151225
